FAERS Safety Report 6326921-0 (Version None)
Quarter: 2009Q3

REPORT INFORMATION
  Report Type: 
  Country: None (occurrence: None)
  Receive Date: 20090825
  Receipt Date: 20090819
  Transmission Date: 20100115
  Serious: Yes (Other)
  Sender: FDA-Public Use
  Company Number: US-JNJFOC-20061004244

PATIENT
  Sex: Female
  Weight: 102.06 kg

DRUGS (4)
  1. RISPERDAL [Suspect]
     Indication: DEPRESSION
  2. TOPROL-XL [Concomitant]
     Indication: DRUG USE FOR UNKNOWN INDICATION
     Dosage: ONE HALF TABLET DAILY
     Route: 065
  3. ZOLOFT [Concomitant]
     Indication: DRUG USE FOR UNKNOWN INDICATION
     Route: 065
  4. TRILEPTAL [Concomitant]
     Indication: CONVULSION

REACTIONS (1)
  - DIABETES MELLITUS [None]
